FAERS Safety Report 9107269 (Version 1)
Quarter: 2013Q1

REPORT INFORMATION
  Report Type: Report from Study
  Country: US (occurrence: US)
  Receive Date: 20130221
  Receipt Date: 20130221
  Transmission Date: 20140127
  Serious: Yes (Hospitalization, Other)
  Sender: FDA-Public Use
  Company Number: US-RB-009198-10

PATIENT
  Age: 19 Year
  Sex: Male

DRUGS (7)
  1. SUBOXONE TABLET [Suspect]
     Indication: DRUG DEPENDENCE
     Route: 065
     Dates: start: 201005, end: 2010
  2. SUBOXONE TABLET [Suspect]
     Route: 065
     Dates: start: 2010, end: 201206
  3. ABILIFY [Concomitant]
     Indication: BIPOLAR DISORDER
     Route: 065
     Dates: start: 2007
  4. NICOTINE [Concomitant]
     Dosage: 25 CIGARETTES PER DAY
     Route: 055
  5. NICOTINE [Concomitant]
     Indication: PRODUCT USED FOR UNKNOWN INDICATION
     Dosage: 35 CIGARETTES PER DAY
     Route: 055
     Dates: start: 201005, end: 2010
  6. LITHIUM [Concomitant]
     Indication: MOOD ALTERED
     Dosage: ONCE AT NIGHT
     Route: 065
     Dates: start: 2007
  7. PERPHENAZINE [Concomitant]
     Indication: BIPOLAR DISORDER
     Route: 065
     Dates: start: 2007

REACTIONS (7)
  - Psychomotor hyperactivity [Not Recovered/Not Resolved]
  - Agitation [Recovered/Resolved]
  - Nicotine dependence [Recovered/Resolved]
  - Drug dependence [Recovered/Resolved]
  - Insomnia [Recovered/Resolved]
  - Pancreatitis [Unknown]
  - Euphoric mood [Recovered/Resolved]
